FAERS Safety Report 9682003 (Version 2)
Quarter: 2013Q4

REPORT INFORMATION
  Report Type: Spontaneous
  Country: CN (occurrence: CN)
  Receive Date: 20131111
  Receipt Date: 20131210
  Transmission Date: 20140711
  Serious: Yes (Death)
  Sender: FDA-Public Use
  Company Number: CN-MPIJNJ-2013MPI000848

PATIENT
  Sex: 0

DRUGS (3)
  1. VELCADE [Suspect]
     Indication: PLASMA CELL MYELOMA
     Dosage: 1.3 MG/M2, ON DAYS 1, 4, 8 AND 11 EVERY 28 DAYS
     Route: 040
     Dates: start: 201201, end: 201304
  2. ADRIAMYCIN [Suspect]
     Indication: PLASMA CELL MYELOMA
     Dosage: 10 MG/M2, ON DAYS 1 THROUG 4 EVERY 28 DAYS
     Route: 041
     Dates: start: 201201, end: 201304
  3. DEXAMETHASONE [Suspect]
     Indication: PLASMA CELL MYELOMA
     Dosage: 20 MG, ON DAYS 1 THROUGH 4 AND 8 THROUGH 11 EVERY 28 DAYS
     Route: 041
     Dates: start: 201201, end: 201304

REACTIONS (1)
  - Lung infection [Fatal]
